FAERS Safety Report 4714882-7 (Version None)
Quarter: 2005Q3

REPORT INFORMATION
  Report Type: 
  Country: None (occurrence: None)
  Receive Date: 20050712
  Receipt Date: 20050630
  Transmission Date: 20060218
  Serious: Yes (Hospitalization)
  Sender: FDA-Public Use
  Company Number: HQWYE952401JUL05

PATIENT
  Age: 29 Year
  Sex: Male

DRUGS (2)
  1. PANTOPRAZOLE SODIUM [Suspect]
     Indication: GASTROOESOPHAGEAL REFLUX DISEASE
     Dosage: 40 MG ^SOME TIME(S) SOME DF^, ORAL; SEE IMAGE
     Route: 048
     Dates: start: 20010101, end: 20010101
  2. PANTOPRAZOLE SODIUM [Suspect]
     Indication: GASTROOESOPHAGEAL REFLUX DISEASE
     Dosage: 40 MG ^SOME TIME(S) SOME DF^, ORAL; SEE IMAGE
     Route: 048
     Dates: start: 20020101

REACTIONS (2)
  - TOXIC SKIN ERUPTION [None]
  - URTICARIA [None]
